FAERS Safety Report 9551633 (Version 1)
Quarter: 2013Q3

REPORT INFORMATION
  Report Type: Spontaneous
  Country: US (occurrence: None)
  Receive Date: 20130923
  Receipt Date: 20130923
  Transmission Date: 20140515
  Serious: Yes (Life-Threatening)
  Sender: FDA-Public Use
  Company Number: None

PATIENT
  Age: 62 Year
  Sex: Female

DRUGS (2)
  1. PEGASYS [Suspect]
     Indication: CHRONIC HEPATITIS C
     Dosage: 180 MCG UNDER THE SKIN
     Dates: start: 20130805
  2. RIBAPAK [Concomitant]

REACTIONS (3)
  - Sepsis [None]
  - Kidney infection [None]
  - Cystitis [None]
